FAERS Safety Report 5895816-9 (Version None)
Quarter: 2008Q3

REPORT INFORMATION
  Report Type: 
  Country: None (occurrence: None)
  Receive Date: 20080828
  Receipt Date: 20071010
  Transmission Date: 20090109
  Serious: Yes (Other)
  Sender: FDA-Public Use
  Company Number: 200810044US

PATIENT
  Age: 59 Year
  Sex: Male
  Weight: 75 kg

DRUGS (5)
  1. LASIX [Suspect]
     Indication: HYPERTENSION
     Dates: start: 20070717, end: 20070717
  2. OXALIPLATIN [Concomitant]
  3. ATENOLOL [Concomitant]
  4. ACETAMINOPHEN [Concomitant]
  5. NIFEDIPINE [Concomitant]

REACTIONS (2)
  - BLOOD PRESSURE INCREASED [None]
  - DRUG INEFFECTIVE [None]
